FAERS Safety Report 17233537 (Version 2)
Quarter: 2020Q1

REPORT INFORMATION
  Report Type: Spontaneous
  Country: US (occurrence: US)
  Receive Date: 20200105
  Receipt Date: 20200305
  Transmission Date: 20200409
  Serious: No
  Sender: FDA-Public Use
  Company Number: US-GLENMARK PHARMACEUTICALS-2019GMK044309

PATIENT

DRUGS (2)
  1. ESTRADIOL VAGINAL INSERTS USP [Suspect]
     Active Substance: ESTRADIOL
     Dosage: UNK, (3X A WEEK)
     Route: 067
  2. ESTRADIOL VAGINAL INSERTS USP [Suspect]
     Active Substance: ESTRADIOL
     Indication: MICTURITION URGENCY
     Dosage: 10 MCG, OD (AT BED TIME FOR 1 WEEK)
     Route: 067
     Dates: start: 20191107

REACTIONS (8)
  - Medical device site haemorrhage [Recovered/Resolved]
  - Device issue [Unknown]
  - Drug dose omission by device [Unknown]
  - Device difficult to use [Unknown]
  - Device effect variable [Unknown]
  - Treatment noncompliance [Unknown]
  - Product use in unapproved indication [Unknown]
  - Device defective [Unknown]

NARRATIVE: CASE EVENT DATE: 201911
